FAERS Safety Report 4755413-5 (Version None)
Quarter: 2005Q3

REPORT INFORMATION
  Report Type: 
  Country: None (occurrence: None)
  Receive Date: 20050826
  Receipt Date: 20050826
  Transmission Date: 20060218
  Serious: No
  Sender: FDA-Public Use
  Company Number: None

PATIENT
  Age: 42 Year
  Sex: Female
  Weight: 70.7611 kg

DRUGS (1)
  1. VANCOMYCIN [Suspect]
     Indication: WOUND ABSCESS
     Dosage: 1 GRAM EVERY 12 HOURS
     Dates: start: 20050617, end: 20050704

REACTIONS (2)
  - RASH ERYTHEMATOUS [None]
  - RASH PRURITIC [None]
